FAERS Safety Report 18283637 (Version 2)
Quarter: 2022Q1

REPORT INFORMATION
  Report Type: Spontaneous
  Country: US (occurrence: US)
  Receive Date: 20200918
  Receipt Date: 20220121
  Transmission Date: 20220423
  Serious: Yes (Other)
  Sender: FDA-Public Use
  Company Number: US-SAARTEMIS-SAC202009160374

PATIENT
  Age: 85 Year
  Sex: Male

DRUGS (1)
  1. ZANTAC [Suspect]
     Active Substance: RANITIDINE HYDROCHLORIDE
     Indication: Gastrooesophageal reflux disease
     Dosage: UNK, QD
     Dates: start: 198007, end: 201401

REACTIONS (2)
  - Oesophageal carcinoma [Recovering/Resolving]
  - Thyroid cancer [Unknown]

NARRATIVE: CASE EVENT DATE: 20140101
